FAERS Safety Report 17296191 (Version 1)
Quarter: 2020Q1

REPORT INFORMATION
  Report Type: Report from Study
  Country: JP (occurrence: JP)
  Receive Date: 20200122
  Receipt Date: 20200122
  Transmission Date: 20200409
  Serious: Yes (Other)
  Sender: FDA-Public Use
  Company Number: JP-ROCHE-2524285

PATIENT
  Sex: Female

DRUGS (3)
  1. ACTEMRA [Suspect]
     Active Substance: TOCILIZUMAB
     Route: 058
  2. ACTEMRA [Suspect]
     Active Substance: TOCILIZUMAB
     Indication: TEMPORAL ARTERITIS
     Route: 058
     Dates: start: 2017, end: 2018
  3. PREDONINE [Concomitant]
     Active Substance: PREDNISOLONE
     Dosage: DOSAGE IS UNCERTAIN.
     Route: 048

REACTIONS (9)
  - Hypoglycaemia [Unknown]
  - Blood glucose increased [Unknown]
  - Weight increased [Unknown]
  - Inappropriate schedule of product administration [Unknown]
  - Skin fissures [Unknown]
  - Cataract [Unknown]
  - Cushingoid [Unknown]
  - Blood pressure increased [Unknown]
  - Back pain [Unknown]
